FAERS Safety Report 6386718-2 (Version None)
Quarter: 2009Q4

REPORT INFORMATION
  Report Type: 
  Country: None (occurrence: None)
  Receive Date: 20091002
  Receipt Date: 20080505
  Transmission Date: 20100525
  Serious: Yes (Disabling, Other)
  Sender: FDA-Public Use
  Company Number: FR-ELI_LILLY_AND_COMPANY-FR_050205887

PATIENT
  Sex: Female
  Weight: 56 kg

DRUGS (8)
  1. OPTRUMA [Suspect]
     Indication: OSTEOPOROSIS
     Dosage: 60 MG, DAILY (1/D)
     Route: 048
     Dates: start: 20041210, end: 20050107
  2. VASTAREL [Concomitant]
  3. KARDEGIC [Concomitant]
  4. INDOCOLLYRE [Concomitant]
  5. TRUSOPT [Concomitant]
  6. VOLTAREN [Concomitant]
     Dosage: UNK, UNK
  7. ARTOTEC [Concomitant]
  8. DI-ANTALVIC [Concomitant]
     Dosage: UNK, AS NEEDED

REACTIONS (5)
  - DEPRESSION [None]
  - FALL [None]
  - JOINT SPRAIN [None]
  - RETINAL HAEMORRHAGE [None]
  - RETINAL VEIN OCCLUSION [None]
